FAERS Safety Report 20360002 (Version 1)
Quarter: 2022Q1

REPORT INFORMATION
  Report Type: Report from Study
  Country: US (occurrence: US)
  Receive Date: 20220121
  Receipt Date: 20220121
  Transmission Date: 20220424
  Serious: No
  Sender: FDA-Public Use
  Company Number: US-Ipsen Biopharmaceuticals, Inc.-2022-01138

PATIENT
  Age: 15 Year

DRUGS (1)
  1. DYSPORT [Suspect]
     Active Substance: ABOBOTULINUMTOXINA
     Indication: Muscle spasticity
     Dosage: TOTAL DOSE-10 (NO UNITS REPORTED), LOWER LIMB PROXIMAL MUSCLES-6, LOWER LIMB DISTAL MUSCLES-4

REACTIONS (1)
  - Drug ineffective [Unknown]
